FAERS Safety Report 22237988 (Version 1)
Quarter: 2023Q2

REPORT INFORMATION
  Report Type: Spontaneous
  Country: HU (occurrence: HU)
  Receive Date: 20230421
  Receipt Date: 20230421
  Transmission Date: 20230721
  Serious: Yes (Other)
  Sender: FDA-Public Use
  Company Number: HU-JNJFOC-20230437750

PATIENT
  Age: 75 Year
  Sex: Male

DRUGS (4)
  1. STELARA [Suspect]
     Active Substance: USTEKINUMAB
     Indication: Psoriatic arthropathy
     Route: 058
     Dates: start: 202102
  2. STELARA [Suspect]
     Active Substance: USTEKINUMAB
     Indication: Psoriasis
  3. METHOTREXATE [Suspect]
     Active Substance: METHOTREXATE
     Indication: Product used for unknown indication
     Route: 065
     Dates: start: 2012
  4. ACITRETIN [Suspect]
     Active Substance: ACITRETIN
     Indication: Product used for unknown indication
     Route: 065
     Dates: start: 202009

REACTIONS (2)
  - Kaposi^s sarcoma [Unknown]
  - Neoplasm [Unknown]

NARRATIVE: CASE EVENT DATE: 20220901
